FAERS Safety Report 12789653 (Version 1)
Quarter: 2016Q3

REPORT INFORMATION
  Report Type: Report from Study
  Country: FR (occurrence: FR)
  Receive Date: 20160928
  Receipt Date: 20160928
  Transmission Date: 20161109
  Serious: Yes (Hospitalization)
  Sender: FDA-Public Use
  Company Number: FR-ROCHE-1835682

PATIENT
  Sex: Male

DRUGS (11)
  1. HOMEOPATHY (UNKNOWN) [Concomitant]
  2. RIBAVIRIN. [Suspect]
     Active Substance: RIBAVIRIN
     Indication: HEPATITIS C
     Route: 065
     Dates: start: 20140710, end: 20150110
  3. DACLATASVIR. [Suspect]
     Active Substance: DACLATASVIR
     Indication: HEPATITIS C
     Route: 065
     Dates: start: 20140710, end: 20150110
  4. ALDACTONE [Concomitant]
     Active Substance: SPIRONOLACTONE
     Indication: ASCITES
     Route: 065
  5. LACTULOSE. [Concomitant]
     Active Substance: LACTULOSE
     Indication: CONSTIPATION
     Dosage: 2 DOSES IN MORNING, AT LUNCHTIME, IN EVENING
     Route: 065
  6. TRAMADOL. [Concomitant]
     Active Substance: TRAMADOL
     Indication: PAIN
     Route: 065
  7. INEXIUM [Concomitant]
     Active Substance: ESOMEPRAZOLE
     Indication: GASTROOESOPHAGEAL REFLUX DISEASE
     Route: 065
  8. SOFOSBUVIR [Suspect]
     Active Substance: SOFOSBUVIR
     Indication: HEPATITIS C
     Route: 065
     Dates: start: 20140710, end: 20150110
  9. LASILIX [Concomitant]
     Active Substance: FUROSEMIDE
     Indication: ASCITES
     Route: 065
  10. GLUCIDION [Suspect]
     Active Substance: GLUCOSE, LIQUID\POTASSIUM CHLORIDE\SODIUM CHLORIDE
     Indication: DIABETES MELLITUS
     Route: 065
     Dates: start: 20160306, end: 20160306
  11. NOVORAPID [Concomitant]
     Active Substance: INSULIN ASPART
     Indication: DIABETES MELLITUS
     Dosage: 18U IN MORNING, 17 U AT LUNCHTIME, 21 U IN EVENING
     Route: 065

REACTIONS (2)
  - Fall [Unknown]
  - Hypoglycaemia [Recovered/Resolved]

NARRATIVE: CASE EVENT DATE: 20160306
